FAERS Safety Report 7746378-2 (Version None)
Quarter: 2011Q3

REPORT INFORMATION
  Report Type: 
  Country: None (occurrence: None)
  Receive Date: 20110913
  Receipt Date: 20110913
  Transmission Date: 20111222
  Serious: Yes (Hospitalization, Other)
  Sender: FDA-Public Use
  Company Number: None

PATIENT
  Age: 36 Year
  Sex: Female
  Weight: 75.749 kg

DRUGS (2)
  1. 2 TABLET [Concomitant]
     Dates: start: 20060118, end: 20110515
  2. PREDNISONE [Suspect]
     Indication: CROHN'S DISEASE
     Dates: start: 20060218, end: 20110228

REACTIONS (4)
  - OSTEONECROSIS [None]
  - CONVULSION [None]
  - COMA [None]
  - STAPHYLOCOCCAL INFECTION [None]
